FAERS Safety Report 21275331 (Version 1)
Quarter: 2022Q3

REPORT INFORMATION
  Report Type: Spontaneous
  Country: US (occurrence: None)
  Receive Date: 20220831
  Receipt Date: 20220831
  Transmission Date: 20221026
  Serious: Yes (Hospitalization)
  Sender: FDA-Public Use
  Company Number: None

PATIENT
  Age: 37 Year
  Sex: Female

DRUGS (2)
  1. AMBRISENTAN [Suspect]
     Active Substance: AMBRISENTAN
     Indication: Pulmonary hypertension
     Dosage: FREQUENCY : DAILY;?
     Route: 048
     Dates: start: 20210224
  2. ORENITRAM [Suspect]
     Active Substance: TREPROSTINIL

REACTIONS (2)
  - Gastrointestinal disorder [None]
  - Therapy cessation [None]

NARRATIVE: CASE EVENT DATE: 20220809
